FAERS Safety Report 15764694 (Version 7)
Quarter: 2025Q1

REPORT INFORMATION
  Report Type: Spontaneous
  Country: FR (occurrence: FR)
  Receive Date: 20181227
  Receipt Date: 20250311
  Transmission Date: 20250408
  Serious: Yes (Other)
  Sender: AUROBINDO
  Company Number: FR-AUROBINDO-AUR-APL-2018-001948

PATIENT
  Age: 70 Year
  Sex: Male

DRUGS (11)
  1. VORICONAZOLE [Suspect]
     Active Substance: VORICONAZOLE
     Indication: Osteomyelitis
     Dosage: 800 MILLIGRAM,
     Route: 065
  2. VORICONAZOLE [Suspect]
     Active Substance: VORICONAZOLE
     Indication: Scedosporium infection
     Dosage: 400 MILLIGRAM
     Route: 065
  3. VORICONAZOLE [Suspect]
     Active Substance: VORICONAZOLE
     Indication: Arthritis infective
     Dosage: 200 MILLIGRAM,
     Route: 065
  4. VORICONAZOLE [Suspect]
     Active Substance: VORICONAZOLE
     Dosage: 1600 MILLIGRAM,
     Route: 065
  5. TERBINAFINE [Suspect]
     Active Substance: TERBINAFINE
     Indication: Scedosporium infection
     Dosage: 1000 MILLIGRAM, ONCE A DAY
     Route: 065
  6. TERBINAFINE [Suspect]
     Active Substance: TERBINAFINE
     Indication: Arthritis infective
  7. TERBINAFINE [Suspect]
     Active Substance: TERBINAFINE
     Indication: Osteomyelitis
  8. MILTEFOSINE [Suspect]
     Active Substance: MILTEFOSINE
     Indication: Scedosporium infection
     Dosage: 150 MILLIGRAM,
     Route: 065
  9. MILTEFOSINE [Suspect]
     Active Substance: MILTEFOSINE
     Dosage: 50 MILLIGRAM,
     Route: 065
  10. CEFTRIAXONE [Concomitant]
     Active Substance: CEFTRIAXONE
     Indication: Staphylococcus test positive
     Dosage: 3 GRAM, ONCE A DAY
     Route: 065
  11. CEFTRIAXONE [Concomitant]
     Active Substance: CEFTRIAXONE
     Indication: Staphylococcal infection

REACTIONS (11)
  - Squamous cell carcinoma of skin [Unknown]
  - Photosensitivity reaction [Recovered/Resolved]
  - Visual impairment [Recovered/Resolved]
  - Drug level decreased [Unknown]
  - Nausea [Recovered/Resolved]
  - Asthenia [Recovered/Resolved]
  - Disease recurrence [Recovered/Resolved]
  - Product use issue [Unknown]
  - Treatment failure [Unknown]
  - Drug effective for unapproved indication [Unknown]
  - Off label use [Recovered/Resolved]
